FAERS Safety Report 8835737 (Version 3)
Quarter: 2013Q3

REPORT INFORMATION
  Report Type: Spontaneous
  Country: FR (occurrence: FR)
  Receive Date: 20121011
  Receipt Date: 20130710
  Transmission Date: 20140515
  Serious: Yes (Hospitalization)
  Sender: FDA-Public Use
  Company Number: FR-SP-2012-09189

PATIENT
  Age: 60 Year
  Sex: Male

DRUGS (1)
  1. IMMUCYST 81 MG [Suspect]
     Indication: BLADDER CANCER
     Route: 043
     Dates: start: 201201

REACTIONS (2)
  - Pyrexia [Recovered/Resolved]
  - Dysuria [Recovered/Resolved]
